FAERS Safety Report 17807704 (Version 1)
Quarter: 2020Q2

REPORT INFORMATION
  Report Type: Spontaneous
  Country: MX (occurrence: MX)
  Receive Date: 20200520
  Receipt Date: 20200520
  Transmission Date: 20200714
  Serious: Yes (Other)
  Sender: FDA-Public Use
  Company Number: MX-MEITHEAL PHARMACEUTICALS-2020MHL00016

PATIENT
  Age: 21 Year
  Sex: Male

DRUGS (1)
  1. BLEOMYCIN [Suspect]
     Active Substance: BLEOMYCIN SULFATE
     Indication: GERM CELL NEOPLASM
     Dosage: 30 IU, ONCE
     Route: 065

REACTIONS (1)
  - Pneumomediastinum [Recovered/Resolved]
